FAERS Safety Report 24385624 (Version 1)
Quarter: 2024Q4

REPORT INFORMATION
  Report Type: Spontaneous
  Country: CA (occurrence: CA)
  Receive Date: 20241001
  Receipt Date: 20241001
  Transmission Date: 20250114
  Serious: Yes (Death, Other)
  Sender: DAIICHI
  Company Number: CA-AstraZeneca-CH-00709302A

PATIENT
  Age: 43 Year
  Sex: Female

DRUGS (4)
  1. TRASTUZUMAB DERUXTECAN [Suspect]
     Active Substance: TRASTUZUMAB DERUXTECAN
     Indication: HER2 positive breast cancer
     Dosage: 255 MILLIGRAM, Q3W
     Route: 042
  2. TRASTUZUMAB DERUXTECAN [Suspect]
     Active Substance: TRASTUZUMAB DERUXTECAN
     Dosage: 255 MILLIGRAM, Q3W
     Route: 042
  3. TRASTUZUMAB DERUXTECAN [Suspect]
     Active Substance: TRASTUZUMAB DERUXTECAN
     Dosage: 255 MILLIGRAM, Q3W
     Route: 042
  4. TRASTUZUMAB DERUXTECAN [Suspect]
     Active Substance: TRASTUZUMAB DERUXTECAN
     Dosage: 255 MILLIGRAM, Q3W
     Route: 042

REACTIONS (1)
  - Death [Fatal]
